FAERS Safety Report 5005247-1 (Version None)
Quarter: 2006Q2

REPORT INFORMATION
  Report Type: 
  Country: None (occurrence: None)
  Receive Date: 20060515
  Receipt Date: 20060504
  Transmission Date: 20061013
  Serious: Yes (Other)
  Sender: FDA-Public Use
  Company Number: CHPA2006US04558

PATIENT
  Age: 49 Year
  Sex: Female
  Weight: 49 kg

DRUGS (4)
  1. NICOTINE [Suspect]
     Indication: SMOKING CESSATION THERAPY
     Dosage: SEE IMAGE
     Route: 062
     Dates: start: 20060327, end: 20060409
  2. NICOTINE [Suspect]
     Indication: SMOKING CESSATION THERAPY
     Dosage: SEE IMAGE
     Route: 062
     Dates: start: 20060410, end: 20060423
  3. NICOTINE [Suspect]
     Indication: SMOKING CESSATION THERAPY
     Dosage: SEE IMAGE
     Route: 062
     Dates: start: 20060424, end: 20060502
  4. NEXIUM [Concomitant]

REACTIONS (11)
  - ABDOMINAL PAIN [None]
  - ANXIETY [None]
  - BURN OESOPHAGEAL [None]
  - CONDITION AGGRAVATED [None]
  - DEPRESSED MOOD [None]
  - DEPRESSION [None]
  - DYSPEPSIA [None]
  - GASTROINTESTINAL DISORDER [None]
  - INSOMNIA [None]
  - OESOPHAGEAL PAIN [None]
  - SINUSITIS [None]
